FAERS Safety Report 22065124 (Version 1)
Quarter: 2023Q1

REPORT INFORMATION
  Report Type: Spontaneous
  Country: US (occurrence: US)
  Receive Date: 20230306
  Receipt Date: 20230306
  Transmission Date: 20230417
  Serious: No
  Sender: FDA-Public Use
  Company Number: US-JNJFOC-20230255025

PATIENT
  Age: 51 Year
  Sex: Female

DRUGS (6)
  1. TOPAMAX [Suspect]
     Active Substance: TOPIRAMATE
     Indication: Product used for unknown indication
     Route: 048
     Dates: end: 20211006
  2. NINTEDANIB ESYLATE [Suspect]
     Active Substance: NINTEDANIB ESYLATE
     Indication: Idiopathic pulmonary fibrosis
     Route: 048
     Dates: start: 20211006
  3. NINTEDANIB ESYLATE [Suspect]
     Active Substance: NINTEDANIB ESYLATE
     Route: 048
     Dates: start: 20211006
  4. NINTEDANIB ESYLATE [Suspect]
     Active Substance: NINTEDANIB ESYLATE
     Route: 048
     Dates: start: 20211006
  5. NINTEDANIB ESYLATE [Suspect]
     Active Substance: NINTEDANIB ESYLATE
     Route: 048
     Dates: start: 20211006
  6. NINTEDANIB ESYLATE [Suspect]
     Active Substance: NINTEDANIB ESYLATE
     Route: 048
     Dates: start: 20211006

REACTIONS (4)
  - Diarrhoea [Recovering/Resolving]
  - COVID-19 [Recovered/Resolved]
  - Constipation [Unknown]
  - Flatulence [Unknown]

NARRATIVE: CASE EVENT DATE: 20211001
